FAERS Safety Report 8332708-X (Version None)
Quarter: 2012Q2

REPORT INFORMATION
  Report Type: 
  Country: None (occurrence: None)
  Receive Date: 20120503
  Receipt Date: 20120425
  Transmission Date: 20120825
  Serious: Yes (Other)
  Sender: FDA-Public Use
  Company Number: JP-VERTEX PHARMACEUTICALS INC.-AE-2012-006175

PATIENT
  Age: 70 Year
  Sex: Female

DRUGS (14)
  1. REBETOL [Concomitant]
     Route: 048
     Dates: start: 20120330
  2. URSO 250 [Concomitant]
     Route: 048
     Dates: end: 20120216
  3. TELAVIC (TELAPREVIR) [Suspect]
     Indication: HEPATITIS C
     Route: 048
     Dates: start: 20120120, end: 20120308
  4. REBETOL [Concomitant]
     Route: 048
     Dates: start: 20120316, end: 20120329
  5. CEREKINON [Concomitant]
     Route: 048
  6. CELEBREX [Concomitant]
     Route: 048
  7. HIRUDOID [Concomitant]
     Route: 061
     Dates: start: 20120120
  8. TELAVIC (TELAPREVIR) [Suspect]
     Route: 048
     Dates: start: 20120309
  9. REBETOL [Concomitant]
     Indication: HEPATITIS C
     Route: 048
     Dates: start: 20120120, end: 20120209
  10. VOLTAREN [Concomitant]
     Route: 048
     Dates: start: 20120120, end: 20120401
  11. REBETOL [Concomitant]
     Route: 048
     Dates: start: 20120309, end: 20120315
  12. PEGINTERFERON ALFA-2B [Concomitant]
     Indication: HEPATITIS C
     Route: 051
     Dates: start: 20120120
  13. REBETOL [Concomitant]
     Route: 048
     Dates: start: 20120210, end: 20120308
  14. DAI-KENCHU-TO [Concomitant]
     Route: 048

REACTIONS (1)
  - RENAL IMPAIRMENT [None]
